FAERS Safety Report 4475569-1 (Version None)
Quarter: 2004Q4

REPORT INFORMATION
  Report Type: 
  Country: None (occurrence: None)
  Receive Date: 20041014
  Receipt Date: 20041014
  Transmission Date: 20050328
  Serious: Yes (Hospitalization)
  Sender: FDA-Public Use
  Company Number: None

PATIENT
  Age: 45 Year
  Sex: Male
  Weight: 86.3 kg

DRUGS (9)
  1. QUETIAPINE 100 MG [Suspect]
     Indication: HALLUCINATION
     Dosage: 100-400 MG QHS ORAL
     Route: 048
  2. QUETIAPINE 100 MG [Suspect]
     Indication: INSOMNIA
     Dosage: 100-400 MG QHS ORAL
     Route: 048
  3. QUETIAPINE 100 MG [Suspect]
     Indication: POST-TRAUMATIC STRESS DISORDER
     Dosage: 100-400 MG QHS ORAL
     Route: 048
  4. CITALOPRAM [Concomitant]
  5. HYDROCHLOROTHIAZIDE [Concomitant]
  6. IBUPROFEN [Concomitant]
  7. MIRTAZAPINE [Concomitant]
  8. OXCARBAZEPINE [Concomitant]
  9. SIMVASTATIN [Concomitant]

REACTIONS (7)
  - ASTHENIA [None]
  - BLOOD GLUCOSE INCREASED [None]
  - FATIGUE [None]
  - HYPERGLYCAEMIC HYPEROSMOLAR NONKETOTIC SYNDROME [None]
  - POLYDIPSIA [None]
  - POLYURIA [None]
  - WEIGHT DECREASED [None]
